FAERS Safety Report 6083966-6 (Version None)
Quarter: 2009Q1

REPORT INFORMATION
  Report Type: 
  Country: None (occurrence: None)
  Receive Date: 20090217
  Receipt Date: 20090205
  Transmission Date: 20090719
  Serious: Yes (Disabling)
  Sender: FDA-Public Use
  Company Number: APP200801205

PATIENT
  Age: 42 Year
  Sex: Male

DRUGS (8)
  1. NAROPIN [Suspect]
     Indication: MUSCULOSKELETAL PAIN
     Dosage: 6 ML/HR CONTINUOUS VIA PUMP, INTRA-ARTICULAR
     Route: 014
     Dates: start: 20061211
  2. NAROPIN [Suspect]
     Indication: MUSCULOSKELETAL PAIN
     Dosage: 6 ML/HR CONTINUOUS VIA PUMP, INTRA-ARTICULAR
     Route: 014
     Dates: start: 20061212
  3. BUPIVACAINE HYDROCHLORIDE W/EPINEPHRINE [Suspect]
     Indication: MUSCULOSKELETAL PAIN
     Dosage: 5 ML, CONTINUOUS VIA PUMP, INTRA-ARTICULAR; 60 ML, LOCAL INFILTRATION
     Route: 014
     Dates: start: 20040312
  4. BUPIVACAINE HYDROCHLORIDE W/EPINEPHRINE [Suspect]
     Indication: MUSCULOSKELETAL PAIN
     Dosage: 5 ML, CONTINUOUS VIA PUMP, INTRA-ARTICULAR; 60 ML, LOCAL INFILTRATION
     Route: 014
     Dates: start: 20040312
  5. I-FLOW ON-Q PAIN PUMP [Suspect]
     Indication: MUSCULOSKELETAL PAIN
     Dates: start: 20040312
  6. I-FLOW ON-Q PAIN PUMP [Suspect]
     Indication: MUSCULOSKELETAL PAIN
     Dates: start: 20061211
  7. NORMAL SALINE WITH 3 ML EPINEPHRINE [Concomitant]
  8. ANCEF [Concomitant]

REACTIONS (3)
  - CHONDROLYSIS [None]
  - MOVEMENT DISORDER [None]
  - MUSCULOSKELETAL PAIN [None]
